FAERS Safety Report 13847105 (Version 1)
Quarter: 2017Q3

REPORT INFORMATION
  Report Type: Spontaneous
  Country: GB (occurrence: GB)
  Receive Date: 20170808
  Receipt Date: 20170808
  Transmission Date: 20171127
  Serious: Yes (Other)
  Sender: FDA-Public Use
  Company Number: GB-PFIZER INC-2017339991

PATIENT
  Age: 63 Year
  Sex: Female
  Weight: 55 kg

DRUGS (10)
  1. CETIRIZINE [Concomitant]
     Active Substance: CETIRIZINE HYDROCHLORIDE
     Indication: HYPERSENSITIVITY
     Dosage: 2 DF, UNK (ON EXPOSURE TO ALLERGEN)
     Dates: start: 20101124
  2. DIAZEPAM. [Concomitant]
     Active Substance: DIAZEPAM
     Dosage: 1 DF, UNK (UP TO THREE TIMES DAILY.)
     Dates: start: 20170606, end: 20170611
  3. HYPROMELLOSE [Concomitant]
     Active Substance: HYPROMELLOSES
     Indication: DRY EYE
     Dosage: 1 GTT, 4X/DAY
     Dates: start: 20170508
  4. EPIPEN [Concomitant]
     Active Substance: EPINEPHRINE
     Dosage: UNK (USE AS DIRECTED BY HOSPITAL.)
     Dates: start: 20160726
  5. OMEPRAZOLE. [Concomitant]
     Active Substance: OMEPRAZOLE
     Dosage: 2 DF, 1X/DAY
     Dates: start: 20110418
  6. ATORVASTATIN [Suspect]
     Active Substance: ATORVASTATIN
     Dosage: UNK
     Dates: start: 20170508
  7. LANSOPRAZOLE. [Concomitant]
     Active Substance: LANSOPRAZOLE
     Dosage: 1 DF, 1X/DAY (BEFORE BREAKFAST.)
     Dates: start: 20170508
  8. ESTRADIOL. [Concomitant]
     Active Substance: ESTRADIOL
     Dosage: 1 DF, 2X/WEEK
     Dates: start: 20160413, end: 20170511
  9. AMLODIPINE [Concomitant]
     Active Substance: AMLODIPINE BESYLATE
     Dosage: 1 DF, 1X/DAY (EACH MORNING)
     Dates: start: 20170606
  10. LISINOPRIL. [Concomitant]
     Active Substance: LISINOPRIL
     Dosage: 1 DF, 1X/DAY
     Dates: start: 20170508, end: 20170606

REACTIONS (4)
  - Myalgia [Unknown]
  - Muscle spasms [Recovering/Resolving]
  - Eye pain [Unknown]
  - Facial pain [Unknown]

NARRATIVE: CASE EVENT DATE: 20170726
